FAERS Safety Report 5889201-3 (Version None)
Quarter: 2008Q3

REPORT INFORMATION
  Report Type: 
  Country: None (occurrence: None)
  Receive Date: 20080919
  Receipt Date: 20080911
  Transmission Date: 20090109
  Serious: Yes (Other)
  Sender: FDA-Public Use
  Company Number: FR-BRISTOL-MYERS SQUIBB COMPANY-14338990

PATIENT
  Age: 60 Year
  Sex: Female

DRUGS (12)
  1. METFORMIN HCL [Suspect]
     Dosage: 850MG TID 05FEB-27MAR08
     Route: 048
     Dates: start: 20080205, end: 20080327
  2. GLUCOPHAGE [Suspect]
     Dosage: 850 MG TID FROM 28MAR-28APR08; 500 MG TID FROM 28-APR-10JUN08 (43 DAYS).
     Route: 048
     Dates: start: 20080328
  3. CRESTOR [Concomitant]
  4. FLUDEX [Concomitant]
  5. PLAVIX [Concomitant]
  6. BISOPROLOL FUMARATE [Concomitant]
  7. OLMETEC [Concomitant]
  8. ZANIDIP [Concomitant]
  9. DEROXAT [Concomitant]
  10. TINSET [Concomitant]
  11. IMOVANE [Concomitant]
  12. MEDIATOR [Concomitant]

REACTIONS (1)
  - VASCULITIS [None]
